FAERS Safety Report 22033658 (Version 1)
Quarter: 2023Q1

REPORT INFORMATION
  Report Type: Spontaneous
  Country: US (occurrence: None)
  Receive Date: 20230222
  Receipt Date: 20230222
  Transmission Date: 20230418
  Serious: No
  Sender: FDA-Public Use
  Company Number: None

PATIENT
  Sex: Female

DRUGS (1)
  1. TREMFYA [Suspect]
     Active Substance: GUSELKUMAB
     Indication: Psoriasis
     Dosage: OTHER FREQUENCY : EVERY8WEEKS;?
     Route: 058
     Dates: start: 20221124

REACTIONS (11)
  - Feeling abnormal [None]
  - Throat tightness [None]
  - Chest discomfort [None]
  - Anxiety [None]
  - Respiration abnormal [None]
  - Blood pressure increased [None]
  - Angina pectoris [None]
  - Vision blurred [None]
  - Pulmonary pain [None]
  - Sneezing [None]
  - Headache [None]
